FAERS Safety Report 8612011-0 (Version None)
Quarter: 2012Q3

REPORT INFORMATION
  Report Type: 
  Country: None (occurrence: None)
  Receive Date: 20120822
  Receipt Date: 20120816
  Transmission Date: 20120928
  Serious: Yes (Hospitalization)
  Sender: FDA-Public Use
  Company Number: JP-GLAXOSMITHKLINE-B0814501A

PATIENT
  Sex: Female
  Weight: 52 kg

DRUGS (6)
  1. AMLODIPINE [Concomitant]
     Indication: HYPERTENSION
     Dosage: 2.5MG PER DAY
     Route: 048
     Dates: end: 20120630
  2. ARASENA-A [Suspect]
     Indication: HERPES ZOSTER
     Route: 061
     Dates: start: 20120626, end: 20120630
  3. RISPERDAL [Concomitant]
     Indication: SCHIZOPHRENIA
     Dosage: 1MG PER DAY
     Route: 048
     Dates: start: 20120107
  4. DEPAS [Concomitant]
     Indication: SCHIZOPHRENIA
     Dosage: .5MG PER DAY
     Route: 048
     Dates: end: 20120630
  5. MICARDIS [Concomitant]
     Indication: HYPERTENSION
     Dosage: 80MG PER DAY
     Route: 048
     Dates: end: 20120630
  6. VALTREX [Suspect]
     Indication: HERPES ZOSTER
     Dosage: 3000MG PER DAY
     Route: 048
     Dates: start: 20120626, end: 20120630

REACTIONS (6)
  - ALTERED STATE OF CONSCIOUSNESS [None]
  - RENAL FAILURE ACUTE [None]
  - BLOOD ELECTROLYTES ABNORMAL [None]
  - RENAL IMPAIRMENT [None]
  - BLOOD UREA INCREASED [None]
  - BLOOD CREATININE INCREASED [None]
